FAERS Safety Report 19183932 (Version 1)
Quarter: 2021Q2

REPORT INFORMATION
  Report Type: Spontaneous
  Country: US (occurrence: US)
  Receive Date: 20210427
  Receipt Date: 20210427
  Transmission Date: 20210717
  Serious: No
  Sender: FDA-Public Use
  Company Number: US-ALLERGAN-2029223US

PATIENT
  Age: 18 Year

DRUGS (1)
  1. TAYTULLA [Suspect]
     Active Substance: ETHINYL ESTRADIOL\NORETHINDRONE ACETATE
     Indication: ACNE
     Dosage: UNK
     Route: 065

REACTIONS (1)
  - Off label use [Unknown]
